FAERS Safety Report 6993611-0 (Version None)
Quarter: 2010Q3

REPORT INFORMATION
  Report Type: 
  Country: None (occurrence: None)
  Receive Date: 20100917
  Receipt Date: 20100914
  Transmission Date: 20110219
  Serious: Yes (Death)
  Sender: FDA-Public Use
  Company Number: PHHY2010US60596

PATIENT
  Age: 42 Year
  Sex: Male

DRUGS (9)
  1. TELBIVUDINE [Suspect]
     Indication: HEPATITIS B
  2. RITONAVIR [Concomitant]
  3. ATAZANAVIR [Concomitant]
  4. LAMIVUDINE [Concomitant]
  5. ABACAVIR [Concomitant]
  6. FOSAMPRENAVIR [Concomitant]
  7. EMTRICITABINE [Concomitant]
  8. TENOFOVIR [Concomitant]
  9. ADEFOVIR DIPIVOXIL KIT [Concomitant]

REACTIONS (10)
  - ACUTE HEPATIC FAILURE [None]
  - AMMONIA INCREASED [None]
  - COAGULOPATHY [None]
  - ENCEPHALOPATHY [None]
  - GENERAL PHYSICAL HEALTH DETERIORATION [None]
  - HAEMATEMESIS [None]
  - INTERNATIONAL NORMALISED RATIO INCREASED [None]
  - PROTHROMBIN TIME PROLONGED [None]
  - THROMBOCYTOPENIA [None]
  - UNRESPONSIVE TO STIMULI [None]
